FAERS Safety Report 18880527 (Version 1)
Quarter: 2021Q1

REPORT INFORMATION
  Report Type: Spontaneous
  Country: GB (occurrence: GB)
  Receive Date: 20210211
  Receipt Date: 20210211
  Transmission Date: 20210420
  Serious: Yes (Other)
  Sender: FDA-Public Use
  Company Number: GB-MYLANLABS-2021M1003779

PATIENT
  Age: 52 Year
  Sex: Female
  Weight: 101.6 kg

DRUGS (3)
  1. TRAMADOL. [Suspect]
     Active Substance: TRAMADOL
     Indication: ARTHRALGIA
     Dosage: 50 MILLIGRAM
     Route: 048
     Dates: start: 2010
  2. GABAPENTIN. [Concomitant]
     Active Substance: GABAPENTIN
     Indication: ILL-DEFINED DISORDER
     Dosage: UNK
  3. MONTELUKAST [Concomitant]
     Active Substance: MONTELUKAST SODIUM
     Indication: ILL-DEFINED DISORDER
     Dosage: UNK

REACTIONS (3)
  - Pain [Recovered/Resolved]
  - Agitation [Recovered/Resolved]
  - Yawning [Recovered/Resolved]

NARRATIVE: CASE EVENT DATE: 2020
